FAERS Safety Report 16463194 (Version 3)
Quarter: 2019Q3

REPORT INFORMATION
  Report Type: Spontaneous
  Country: US (occurrence: US)
  Receive Date: 20190621
  Receipt Date: 20190930
  Transmission Date: 20191004
  Serious: No
  Sender: FDA-Public Use
  Company Number: US-PFIZER INC-2019261345

PATIENT
  Age: 55 Year
  Sex: Female

DRUGS (14)
  1. TOPAMAX [Concomitant]
     Active Substance: TOPIRAMATE
     Dosage: 100 MG, DAILY
     Route: 048
     Dates: end: 20120110
  2. DEMEROL [Suspect]
     Active Substance: MEPERIDINE HYDROCHLORIDE
     Dosage: UNK
  3. CELEBREX [Concomitant]
     Active Substance: CELECOXIB
     Indication: OSTEOARTHRITIS
     Dosage: 300 MG, 2X/DAY
     Route: 048
     Dates: end: 20110825
  4. LAMICTAL [Concomitant]
     Active Substance: LAMOTRIGINE
     Dosage: 100 MG, 1X/DAY
     Route: 048
     Dates: end: 20171026
  5. CELEBREX [Concomitant]
     Active Substance: CELECOXIB
     Dosage: 2 DF, 2X/DAY
     Route: 048
     Dates: start: 20110825, end: 20111121
  6. FLEXERIL [Concomitant]
     Active Substance: CYCLOBENZAPRINE HYDROCHLORIDE
     Indication: BACK PAIN
     Dosage: 5 MG, 2X/DAY
     Route: 048
     Dates: end: 20110825
  7. FLEXERIL [Concomitant]
     Active Substance: CYCLOBENZAPRINE HYDROCHLORIDE
     Dosage: 1 DF, 2X/DAY
     Route: 048
     Dates: start: 20110825, end: 20111121
  8. ANTARA [Concomitant]
     Active Substance: FENOFIBRATE
     Indication: HYPERLIPIDAEMIA
     Dosage: 730 MG, DAILY
     Route: 048
     Dates: end: 20110825
  9. ANTARA [Concomitant]
     Active Substance: FENOFIBRATE
     Dosage: 1 DF, 1X/DAY (ONE CAPSULE ORALLY EVERY MORNING BEFORE BREAKFAST)
     Route: 048
     Dates: start: 20110825, end: 20111220
  10. PRILOSEC [Concomitant]
     Active Substance: OMEPRAZOLE MAGNESIUM
     Dosage: 1 DF, 1X/DAY (ONE CAPSULE BEFORE BREAKFAST)
     Route: 048
     Dates: start: 20110825, end: 20111121
  11. ZOCOR [Concomitant]
     Active Substance: SIMVASTATIN
     Indication: HYPERLIPIDAEMIA
     Dosage: 40 MG, 1X/DAY (NIGHTLY)
     Route: 048
     Dates: end: 20110825
  12. PRILOSEC [Concomitant]
     Active Substance: OMEPRAZOLE MAGNESIUM
     Indication: GASTROOESOPHAGEAL REFLUX DISEASE
     Dosage: 20 MG, DAILY
     Route: 048
     Dates: end: 20110825
  13. TOPAMAX [Concomitant]
     Active Substance: TOPIRAMATE
     Dosage: 200 MG, DAILY
     Route: 048
     Dates: end: 20171026
  14. ZOCOR [Concomitant]
     Active Substance: SIMVASTATIN
     Dosage: 1 DF, 1X/DAY (NIGHTLY)
     Route: 048
     Dates: start: 20110825, end: 20111121

REACTIONS (5)
  - Photodermatosis [Unknown]
  - Dermatitis [Unknown]
  - Drug hypersensitivity [Unknown]
  - Melanocytic naevus [Unknown]
  - Seborrhoeic keratosis [Unknown]

NARRATIVE: CASE EVENT DATE: 2002
